FAERS Safety Report 9516738 (Version 2)
Quarter: 2013Q3

REPORT INFORMATION
  Report Type: Spontaneous
  Country: US (occurrence: US)
  Receive Date: 20130911
  Receipt Date: 20130911
  Transmission Date: 20140515
  Serious: No
  Sender: FDA-Public Use
  Company Number: US-ASTRAZENECA-2013SE51466

PATIENT
  Age: 48 Year
  Sex: Male
  Weight: 97.5 kg

DRUGS (6)
  1. SYMBICORT [Suspect]
     Indication: ASTHMA
     Dosage: 160/4.5 MCG, 2 PUFFS BID
     Route: 055
  2. NEXIUM [Suspect]
     Indication: GASTROOESOPHAGEAL REFLUX DISEASE
     Dosage: 40MG DAILY AND SOMETIMES 2X PER DAY AS NEEDED
     Route: 048
     Dates: start: 2012
  3. ZYRTEC [Concomitant]
     Indication: MULTIPLE ALLERGIES
     Route: 048
  4. VENTOLIN [Concomitant]
     Indication: ASTHMA
     Route: 055
  5. SINGULAIR [Concomitant]
     Route: 048
  6. MUCINEX OTC [Concomitant]
     Indication: RESPIRATORY TRACT CONGESTION
     Route: 048

REACTIONS (6)
  - Asthma [Unknown]
  - Gastrooesophageal reflux disease [Unknown]
  - Pulmonary congestion [Unknown]
  - Intentional drug misuse [Unknown]
  - Circumstance or information capable of leading to medication error [Unknown]
  - Intentional drug misuse [Unknown]
